FAERS Safety Report 6054225-2 (Version None)
Quarter: 2009Q1

REPORT INFORMATION
  Report Type: 
  Country: None (occurrence: None)
  Receive Date: 20090127
  Receipt Date: 20090121
  Transmission Date: 20090719
  Serious: Yes (Disabling, Other)
  Sender: FDA-Public Use
  Company Number: US-PURDUE-USA_2008_0035983

PATIENT
  Age: 59 Year
  Sex: Female

DRUGS (2)
  1. OXYCODONE HCL [Suspect]
     Indication: DRUG USE FOR UNKNOWN INDICATION
     Dosage: 40 MG, DAILY
     Dates: start: 20080229
  2. XANAX [Concomitant]
     Indication: ANXIETY

REACTIONS (5)
  - DEAFNESS UNILATERAL [None]
  - FEELING OF DESPAIR [None]
  - HEARING IMPAIRED [None]
  - INSOMNIA [None]
  - TINNITUS [None]
